FAERS Safety Report 18245703 (Version 2)
Quarter: 2020Q3

REPORT INFORMATION
  Report Type: Report from Study
  Country: None (occurrence: US)
  Receive Date: 20200909
  Receipt Date: 20200911
  Transmission Date: 20201103
  Serious: Yes (Death)
  Sender: FDA-Public Use
  Company Number: US-ABBVIE-20K-163-3557952-00

PATIENT
  Age: 59 Year
  Sex: Male
  Weight: 59.02 kg

DRUGS (1)
  1. CREON [Suspect]
     Active Substance: PANCRELIPASE AMYLASE\PANCRELIPASE LIPASE\PANCRELIPASE PROTEASE
     Indication: DYSPEPSIA
     Dosage: 3?5 TIMES A DAY WITH MEALS AND SNACKS.
     Route: 048
     Dates: start: 2019, end: 202003

REACTIONS (5)
  - Sepsis [Fatal]
  - Unevaluable event [Unknown]
  - Pancreatic carcinoma metastatic [Fatal]
  - Renal failure [Fatal]
  - Pneumonia [Fatal]

NARRATIVE: CASE EVENT DATE: 202003
